FAERS Safety Report 4683024-9 (Version None)
Quarter: 2005Q2

REPORT INFORMATION
  Report Type: 
  Country: None (occurrence: None)
  Receive Date: 20050606
  Receipt Date: 20050310
  Transmission Date: 20051028
  Serious: Yes (Hospitalization)
  Sender: FDA-Public Use
  Company Number: US-MERCK-0503USA02075

PATIENT
  Age: 58 Year
  Sex: Female
  Weight: 45 kg

DRUGS (25)
  1. ALTACE [Concomitant]
     Route: 048
     Dates: start: 20040101
  2. ALTACE [Concomitant]
     Route: 048
  3. LIPITOR [Concomitant]
     Route: 065
     Dates: start: 19990101, end: 19990101
  4. VIOXX [Suspect]
     Indication: ARTHRITIS
     Route: 048
     Dates: start: 19991201
  5. VIOXX [Suspect]
     Route: 048
  6. ASPIRIN [Concomitant]
     Route: 065
  7. ARICEPT [Concomitant]
     Route: 048
  8. ARICEPT [Concomitant]
     Route: 048
  9. SYNTHROID [Concomitant]
     Route: 048
  10. SYNTHROID [Concomitant]
     Route: 048
     Dates: end: 20040428
  11. SYNTHROID [Concomitant]
     Route: 048
  12. SYNTHROID [Concomitant]
     Route: 048
  13. PROZAC [Concomitant]
     Indication: DEPRESSION
     Route: 048
     Dates: start: 20000101
  14. PROZAC [Concomitant]
     Route: 048
  15. PROZAC [Concomitant]
     Route: 048
  16. CLARITIN-D [Concomitant]
     Route: 048
  17. VITAMINS (UNSPECIFIED) [Concomitant]
     Route: 065
  18. RISPERDAL [Concomitant]
     Route: 065
  19. REMERON [Concomitant]
     Route: 065
  20. PREMARIN [Concomitant]
     Route: 065
  21. HUMALOG [Concomitant]
     Route: 058
     Dates: end: 20040428
  22. HUMULIN N [Concomitant]
     Route: 065
  23. ZESTRIL [Concomitant]
     Route: 065
  24. HYDROCHLOROTHIAZIDE AND TRIAMTERENE [Concomitant]
     Route: 065
  25. URSODIOL [Concomitant]
     Route: 065
     Dates: end: 20040428

REACTIONS (41)
  - ABDOMINAL DISCOMFORT [None]
  - AMNESIA [None]
  - ANGINA PECTORIS [None]
  - AORTIC STENOSIS [None]
  - ATRIAL TACHYCARDIA [None]
  - CARDIAC FAILURE CONGESTIVE [None]
  - CEREBROVASCULAR ACCIDENT [None]
  - CHRONIC OBSTRUCTIVE PULMONARY DISEASE [None]
  - CONFUSIONAL STATE [None]
  - DEMENTIA [None]
  - DIABETES MELLITUS [None]
  - DIVERTICULITIS [None]
  - DUODENAL ULCER [None]
  - DYSPNOEA [None]
  - EMOTIONAL DISTRESS [None]
  - GAIT DISTURBANCE [None]
  - GASTRIC DISORDER [None]
  - GASTROINTESTINAL HAEMORRHAGE [None]
  - GASTROINTESTINAL ULCER [None]
  - HAEMATOCHEZIA [None]
  - INCONTINENCE [None]
  - IRRITABLE BOWEL SYNDROME [None]
  - LACTOSE INTOLERANCE [None]
  - MAJOR DEPRESSION [None]
  - MENTAL DISORDER DUE TO A GENERAL MEDICAL CONDITION [None]
  - MIGRAINE [None]
  - MITRAL VALVE INCOMPETENCE [None]
  - MYOCARDIAL INFARCTION [None]
  - NORMAL PRESSURE HYDROCEPHALUS [None]
  - OEDEMA [None]
  - PANIC DISORDER [None]
  - PULMONARY VALVE INCOMPETENCE [None]
  - SEASONAL ALLERGY [None]
  - SINUS BRADYCARDIA [None]
  - SINUS DISORDER [None]
  - SWELLING [None]
  - TRICUSPID VALVE INCOMPETENCE [None]
  - UPPER GASTROINTESTINAL HAEMORRHAGE [None]
  - VENOUS INSUFFICIENCY [None]
  - VENTRICULAR HYPERTROPHY [None]
  - WEIGHT DECREASED [None]
